FAERS Safety Report 7481519-6 (Version None)
Quarter: 2011Q2

REPORT INFORMATION
  Report Type: 
  Country: None (occurrence: None)
  Receive Date: 20110516
  Receipt Date: 20110513
  Transmission Date: 20111010
  Serious: Yes (Hospitalization, Other)
  Sender: FDA-Public Use
  Company Number: US-ROXANE LABORATORIES, INC.-2011-DE-02659GD

PATIENT
  Sex: Male

DRUGS (6)
  1. MELPHALAN HYDROCHLORIDE [Suspect]
     Dosage: 60 MG
     Route: 048
     Dates: start: 20090801
  2. MELPHALAN HYDROCHLORIDE [Suspect]
     Indication: UVEITIS
     Dosage: 1 MG/KG
     Route: 048
  3. MELPHALAN HYDROCHLORIDE [Suspect]
     Dosage: 40 MG
     Route: 048
     Dates: end: 20080101
  4. CORTICOSTEROIDS [Suspect]
     Indication: UVEITIS
     Dates: end: 20080101
  5. RETISERT [Suspect]
     Indication: UVEITIS
     Dosage: PELLET IMPLANTED IN THE VITREOUS CAVITY AND FIXATED TRANSSCLERALLY RELEASING 0.3-0.6 MCG/DAY
     Dates: start: 20080701
  6. MELPHALAN HYDROCHLORIDE [Suspect]
     Dosage: 15 MG
     Route: 048

REACTIONS (6)
  - VISUAL ACUITY REDUCED [None]
  - NECROTISING HERPETIC RETINOPATHY [None]
  - ACNE [None]
  - CATARACT [None]
  - VITRITIS [None]
  - OCULAR HYPERTENSION [None]
